FAERS Safety Report 15264933 (Version 2)
Quarter: 2018Q4

REPORT INFORMATION
  Report Type: Report from Study
  Country: US (occurrence: US)
  Receive Date: 20180810
  Receipt Date: 20181015
  Transmission Date: 20190204
  Serious: No
  Sender: FDA-Public Use
  Company Number: US-ALEXION PHARMACEUTICALS INC.-A201809330

PATIENT
  Sex: Male

DRUGS (1)
  1. SOLIRIS [Suspect]
     Active Substance: ECULIZUMAB
     Indication: MYASTHENIA GRAVIS
     Route: 065

REACTIONS (5)
  - Musculoskeletal stiffness [Unknown]
  - Stomatitis [Not Recovered/Not Resolved]
  - Weight increased [Unknown]
  - Oedema [Unknown]
  - Oedema peripheral [Recovered/Resolved]
